FAERS Safety Report 23845650 (Version 1)
Quarter: 2024Q2

REPORT INFORMATION
  Report Type: Spontaneous
  Country: GR (occurrence: GR)
  Receive Date: 20240511
  Receipt Date: 20240511
  Transmission Date: 20240716
  Serious: Yes (Hospitalization, Other)
  Sender: FDA-Public Use
  Company Number: GR-ETON PHARMACEUTICALS, INC-2024ETO000103

PATIENT
  Age: 11 Year
  Sex: Female

DRUGS (1)
  1. HYDROCORTISONE [Suspect]
     Active Substance: HYDROCORTISONE
     Indication: Adrenogenital syndrome
     Dosage: UNK
     Route: 065

REACTIONS (1)
  - Pelvic venous thrombosis [Recovering/Resolving]
